FAERS Safety Report 12613992 (Version 1)
Quarter: 2016Q3

REPORT INFORMATION
  Report Type: Spontaneous
  Country: US (occurrence: None)
  Receive Date: 20160801
  Receipt Date: 20160801
  Transmission Date: 20161109
  Serious: Yes (Hospitalization)
  Sender: FDA-Public Use
  Company Number: None

PATIENT
  Age: 34 Year
  Sex: Female
  Weight: 49.7 kg

DRUGS (2)
  1. CYCLOPHOSPHAMIDE. [Suspect]
     Active Substance: CYCLOPHOSPHAMIDE
     Dates: end: 20160718
  2. DOXORUBICIN HYDROCHLORIDE. [Suspect]
     Active Substance: DOXORUBICIN HYDROCHLORIDE
     Dates: end: 20160718

REACTIONS (9)
  - Vomiting [None]
  - Hypocalcaemia [None]
  - Hyponatraemia [None]
  - Hypomagnesaemia [None]
  - Nausea [None]
  - Peripheral swelling [None]
  - Dehydration [None]
  - Dyspnoea [None]
  - Paraesthesia [None]

NARRATIVE: CASE EVENT DATE: 20160718
